FAERS Safety Report 8503815-3 (Version None)
Quarter: 2012Q3

REPORT INFORMATION
  Report Type: 
  Country: None (occurrence: None)
  Receive Date: 20120711
  Receipt Date: 20120628
  Transmission Date: 20120928
  Serious: No
  Sender: FDA-Public Use
  Company Number: CA-JNJFOC-20120702000

PATIENT
  Sex: Female
  Weight: 86 kg

DRUGS (6)
  1. ANTIHYPERTENSIVE AGENT [Concomitant]
     Route: 065
  2. IRON [Concomitant]
     Route: 065
  3. REMICADE [Suspect]
     Indication: RHEUMATOID ARTHRITIS
     Route: 042
     Dates: start: 20080212
  4. IMURAN [Concomitant]
     Route: 065
  5. CALCIUM [Concomitant]
     Route: 065
  6. ACETAMINOPHEN [Concomitant]
     Indication: ARTHRITIS
     Route: 065

REACTIONS (2)
  - FACIAL PAIN [None]
  - SINUSITIS [None]
